FAERS Safety Report 6670295-2 (Version None)
Quarter: 2010Q2

REPORT INFORMATION
  Report Type: 
  Country: None (occurrence: None)
  Receive Date: 20100405
  Receipt Date: 20100319
  Transmission Date: 20101027
  Serious: Yes (Hospitalization, Other)
  Sender: FDA-Public Use
  Company Number: 2009003113

PATIENT
  Age: 72 Year
  Sex: Male
  Weight: 71.5 kg

DRUGS (10)
  1. ERLOTINIB HYDROCHLORIDE [Suspect]
     Indication: LUNG ADENOCARCINOMA
     Dosage: (150 MG, QD), ORAL
     Route: 048
     Dates: start: 20090608, end: 20090620
  2. LOXONIN (LOXOPROFEN SODIUM) [Suspect]
     Indication: DRUG USE FOR UNKNOWN INDICATION
     Dosage: (120 MG, QD) , ORAL
     Route: 048
     Dates: end: 20090701
  3. ZOLPIDEM TARTRATE [Concomitant]
  4. MUCOSTA (REBAMIPIDE) [Concomitant]
  5. NAUZELIN (DOMPERIDONE) [Concomitant]
  6. PROTECADIN [Concomitant]
  7. LOPERAMIDE HCL [Concomitant]
  8. LAC-B [Concomitant]
  9. ALBUMIN TANNATE (ALBUMIN TANNATE) [Concomitant]
  10. ADSORBIN (ALUMINUM SILICATE) [Concomitant]

REACTIONS (6)
  - BLOOD ALKALINE PHOSPHATASE INCREASED [None]
  - BLOOD LACTATE DEHYDROGENASE INCREASED [None]
  - DIARRHOEA [None]
  - LUNG ADENOCARCINOMA METASTATIC [None]
  - MALIGNANT NEOPLASM PROGRESSION [None]
  - WHITE BLOOD CELL COUNT INCREASED [None]
